FAERS Safety Report 24286328 (Version 1)
Quarter: 2024Q3

REPORT INFORMATION
  Report Type: Spontaneous
  Country: BR (occurrence: BR)
  Receive Date: 20240905
  Receipt Date: 20240905
  Transmission Date: 20241017
  Serious: Yes (Hospitalization, Other)
  Sender: ABBVIE
  Company Number: BR-ABBVIE-5902756

PATIENT
  Age: 64 Year
  Sex: Male

DRUGS (4)
  1. SKYRIZI [Suspect]
     Active Substance: RISANKIZUMAB-RZAA
     Indication: Psoriasis
     Route: 058
     Dates: start: 2019
  2. SKYRIZI [Suspect]
     Active Substance: RISANKIZUMAB-RZAA
     Indication: Psoriatic arthropathy
  3. LIRAGLUTIDE [Concomitant]
     Active Substance: LIRAGLUTIDE
     Indication: Diabetes mellitus
  4. EMPAGLIFLOZIN [Concomitant]
     Active Substance: EMPAGLIFLOZIN
     Indication: Diabetes mellitus

REACTIONS (12)
  - Dyspnoea [Unknown]
  - Asthenia [Unknown]
  - Lymphadenopathy [Unknown]
  - Pneumonitis [Unknown]
  - Tuberculosis [Recovering/Resolving]
  - Pyrexia [Unknown]
  - Cough [Unknown]
  - Decreased appetite [Unknown]
  - Granulomatous lymphadenitis [Unknown]
  - COVID-19 [Unknown]
  - Pulmonary mass [Unknown]
  - Granuloma [Unknown]
